FAERS Safety Report 5293164-1 (Version None)
Quarter: 2007Q2

REPORT INFORMATION
  Report Type: 
  Country: None (occurrence: None)
  Receive Date: 20070411
  Receipt Date: 20070403
  Transmission Date: 20071010
  Serious: Yes (Other)
  Sender: FDA-Public Use
  Company Number: GB-ELI_LILLY_AND_COMPANY-GB200704000425

PATIENT
  Age: 64 Year
  Sex: Female

DRUGS (2)
  1. GEMCITABINE HCL [Suspect]
     Indication: PANCREATIC CARCINOMA
     Dates: start: 20040701, end: 20041001
  2. CAPECITABINE [Concomitant]
     Indication: PANCREATIC CARCINOMA
     Route: 042
     Dates: start: 20040701, end: 20050401

REACTIONS (3)
  - CONVULSION [None]
  - LEUKODYSTROPHY [None]
  - NUCLEAR MAGNETIC RESONANCE IMAGING BRAIN ABNORMAL [None]
